FAERS Safety Report 7321835-1 (Version None)
Quarter: 2011Q1

REPORT INFORMATION
  Report Type: 
  Country: None (occurrence: None)
  Receive Date: 20110228
  Receipt Date: 20110214
  Transmission Date: 20110831
  Serious: Yes (Other)
  Sender: FDA-Public Use
  Company Number: PHHY2011JP11953

PATIENT
  Age: 78 Year
  Sex: Female
  Weight: 45.5 kg

DRUGS (5)
  1. VINCRISTINE [Suspect]
     Indication: B-CELL LYMPHOMA STAGE IV
  2. RUBICIN [Suspect]
     Indication: B-CELL LYMPHOMA STAGE IV
  3. RITUXIMAB [Suspect]
     Indication: B-CELL LYMPHOMA STAGE IV
  4. PREDNISOLONE [Suspect]
     Indication: B-CELL LYMPHOMA STAGE IV
  5. CYCLOPHOSPHAMIDE [Suspect]
     Indication: B-CELL LYMPHOMA STAGE IV

REACTIONS (5)
  - ILEAL STENOSIS [None]
  - NAUSEA [None]
  - INTESTINAL DILATATION [None]
  - ABDOMINAL PAIN [None]
  - VOMITING [None]
